FAERS Safety Report 25404718 (Version 1)
Quarter: 2025Q2

REPORT INFORMATION
  Report Type: Spontaneous
  Country: GR (occurrence: GR)
  Receive Date: 20250606
  Receipt Date: 20250606
  Transmission Date: 20250716
  Serious: Yes (Other)
  Sender: AMGEN
  Company Number: GR-AMGEN-GRCSP2025107990

PATIENT
  Age: 37 Year
  Sex: Female

DRUGS (2)
  1. BEVACIZUMAB [Suspect]
     Active Substance: BEVACIZUMAB
     Indication: Lung adenocarcinoma
     Route: 065
  2. Carboplatin;Pemetrexed [Concomitant]
     Route: 065

REACTIONS (2)
  - Lung adenocarcinoma [Unknown]
  - Arterial stenosis [Unknown]
